FAERS Safety Report 8892204 (Version 1)
Quarter: 2012Q4

REPORT INFORMATION
  Report Type: 
  Country: US (occurrence: US)
  Receive Date: 20121107
  Receipt Date: 20121107
  Transmission Date: 20130627
  Serious: Yes (Other)
  Sender: FDA-Public Use
  Company Number: US-AMGEN-USASP2011055638

PATIENT
  Sex: Female

DRUGS (12)
  1. ENBREL [Suspect]
     Indication: PRODUCT USED FOR UNKNOWN INDICATION
     Dosage: 25 mg, 2 times/wk
     Route: 058
  2. ROCEPHIN [Concomitant]
     Dosage: 1 g, UNK
  3. JANUVIA [Concomitant]
     Dosage: 50 mg, UNK
  4. FOSAMAX [Concomitant]
     Dosage: 40 mg, UNK
  5. MEDROL                             /00049601/ [Concomitant]
     Dosage: 2 mg, UNK
  6. LOMOTIL [Concomitant]
     Dosage: 2.5 mg, UNK
  7. PROVENTIL                          /00139501/ [Concomitant]
     Dosage: 0.5 UNK, UNK
  8. ALPRAZOLAM [Concomitant]
     Dosage: 1 mg, UNK
  9. AXID                               /00867001/ [Concomitant]
     Dosage: 150 mg, UNK
  10. OXYCODONE [Concomitant]
     Dosage: 5 mg, UNK
  11. METHOTREXATE [Concomitant]
     Dosage: 250 mg, UNK
  12. LEUCOVORIN /00566701/ [Concomitant]
     Dosage: 200 mg, UNK

REACTIONS (1)
  - Sepsis [Unknown]
